FAERS Safety Report 15056979 (Version 1)
Quarter: 2018Q2

REPORT INFORMATION
  Report Type: Spontaneous
  Country: US (occurrence: US)
  Receive Date: 20180604
  Receipt Date: 20180604
  Transmission Date: 20180711
  Serious: Yes (Hospitalization, Other)
  Sender: FDA-Public Use
  Company Number: None

PATIENT
  Age: 59 Year
  Sex: Female
  Weight: 104.33 kg

DRUGS (23)
  1. CENTRUM VITAMIN [Concomitant]
  2. FLUOCINONIDE. [Concomitant]
     Active Substance: FLUOCINONIDE
  3. HAIR VITAMIN- NATURE BOUNT [Concomitant]
  4. TRIAMCINOLONE [Concomitant]
     Active Substance: TRIAMCINOLONE
  5. FINASTERIDE 5MG TABLET USP DR REDDYS LABORATORIES LIMITED [Suspect]
     Active Substance: FINASTERIDE
     Indication: ALOPECIA
     Dosage: 1/2 TABLE TWICE DAILY, MOUTH
     Route: 048
     Dates: start: 201602, end: 20180528
  6. HYDROCODONE-ACETAMINOPHEN [Concomitant]
     Active Substance: ACETAMINOPHEN\HYDROCODONE
  7. PANTOPRAZOLE [Concomitant]
     Active Substance: PANTOPRAZOLE
  8. VITAMIN D [Concomitant]
     Active Substance: CHOLECALCIFEROL
  9. BISMUTH SUBSALICYLATE. [Concomitant]
     Active Substance: BISMUTH SUBSALICYLATE
  10. CELECOXIB. [Concomitant]
     Active Substance: CELECOXIB
  11. FINASTERIDE. [Concomitant]
     Active Substance: FINASTERIDE
  12. METOPROLOL SUCCINATE. [Concomitant]
     Active Substance: METOPROLOL SUCCINATE
  13. PREGABALIN. [Concomitant]
     Active Substance: PREGABALIN
  14. ADVAIR DISKUS [Concomitant]
     Active Substance: FLUTICASONE PROPIONATE\SALMETEROL XINAFOATE
  15. LOTEMAX [Concomitant]
     Active Substance: LOTEPREDNOL ETABONATE
  16. FLUOCINOLONE ACETONIDE BODY [Concomitant]
  17. MELOXICAM. [Concomitant]
     Active Substance: MELOXICAM
  18. VENTOLIN HFA [Concomitant]
     Active Substance: ALBUTEROL SULFATE
  19. FLUTICASONE. [Concomitant]
     Active Substance: FLUTICASONE
  20. OMEGA-3 ACID ETHYL ESTERS [Concomitant]
     Active Substance: OMEGA-3-ACID ETHYL ESTERS
  21. ATORVASTATIN [Concomitant]
     Active Substance: ATORVASTATIN
  22. FENOFIBRATE. [Concomitant]
     Active Substance: FENOFIBRATE
  23. TOLTERODINE [Concomitant]
     Active Substance: TOLTERODINE

REACTIONS (3)
  - Dizziness [None]
  - Headache [None]
  - Eye pain [None]
